FAERS Safety Report 7367725-X (Version None)
Quarter: 2011Q1

REPORT INFORMATION
  Report Type: 
  Country: None (occurrence: None)
  Receive Date: 20110322
  Receipt Date: 20110316
  Transmission Date: 20110831
  Serious: Yes (Hospitalization, Other)
  Sender: FDA-Public Use
  Company Number: US-ABBOTT-11P-163-0712691-00

PATIENT
  Sex: Female
  Weight: 70.37 kg

DRUGS (5)
  1. HUMIRA [Suspect]
     Indication: RHEUMATOID ARTHRITIS
     Route: 058
     Dates: end: 20110131
  2. HUMIRA [Suspect]
     Route: 058
     Dates: start: 20110221
  3. SYNTHROID [Concomitant]
     Indication: HYPOTHYROIDISM
     Dosage: TAKES (188 MCG TOTAL DAILY).
     Route: 048
  4. MULTI-VITAMIN [Concomitant]
     Indication: VITAMIN SUPPLEMENTATION
     Route: 048
  5. PRILOSEC [Concomitant]
     Indication: GASTROOESOPHAGEAL REFLUX DISEASE

REACTIONS (6)
  - KNEE DEFORMITY [None]
  - JOINT EFFUSION [None]
  - ARTHRALGIA [None]
  - BACK PAIN [None]
  - OSTEOARTHRITIS [None]
  - CHONDROPATHY [None]
